FAERS Safety Report 8763747 (Version 1)
Quarter: 2012Q4

REPORT INFORMATION
  Report Type: 
  Country: CO (occurrence: CO)
  Receive Date: 20120831
  Receipt Date: 20120831
  Transmission Date: 20130627
  Serious: Yes (Death, Hospitalization, Other)
  Sender: FDA-Public Use
  Company Number: PHHY2012CO074917

PATIENT
  Age: 51 Year
  Sex: Female

DRUGS (2)
  1. TASIGNA [Suspect]
     Indication: CHRONIC MYELOID LEUKAEMIA
     Dosage: 200 mg, UNK
     Dates: start: 2008
  2. TASIGNA [Suspect]
     Dosage: 200 mg, UNK
     Route: 048
     Dates: start: 201206, end: 201208

REACTIONS (4)
  - Infarction [Fatal]
  - Haemoptysis [Fatal]
  - Ecchymosis [Fatal]
  - Pyrexia [Fatal]
